FAERS Safety Report 8202179-2 (Version None)
Quarter: 2012Q1

REPORT INFORMATION
  Report Type: 
  Country: None (occurrence: None)
  Receive Date: 20120312
  Receipt Date: 20120307
  Transmission Date: 20120608
  Serious: Yes (Other)
  Sender: FDA-Public Use
  Company Number: US-BAYER-2011-018446

PATIENT
  Age: 29 Year
  Sex: Female
  Weight: 105.6 kg

DRUGS (5)
  1. YAZ [Suspect]
     Indication: CONTRACEPTION
     Dosage: UNK UNK, QD
     Route: 048
     Dates: start: 20070701, end: 20090501
  2. MOBIC [Concomitant]
  3. TRAMADOL HCL [Concomitant]
  4. FLEXERIL [Concomitant]
  5. ULTRAM [Concomitant]

REACTIONS (7)
  - DECREASED ACTIVITY [None]
  - EMOTIONAL DISTRESS [None]
  - DEEP VEIN THROMBOSIS [None]
  - OEDEMA PERIPHERAL [None]
  - POST THROMBOTIC SYNDROME [None]
  - ERYTHEMA [None]
  - PAIN [None]
